FAERS Safety Report 16411403 (Version 1)
Quarter: 2019Q2

REPORT INFORMATION
  Report Type: Report from Study
  Country: US (occurrence: US)
  Receive Date: 20190610
  Receipt Date: 20190610
  Transmission Date: 20190711
  Serious: Yes (Other)
  Sender: FDA-Public Use
  Company Number: US-OTSUKA-2019_021982

PATIENT
  Sex: Female

DRUGS (1)
  1. BREXPIPRAZOLE [Suspect]
     Active Substance: BREXPIPRAZOLE
     Indication: MAJOR DEPRESSION
     Dosage: 1 MG, QD
     Route: 048
     Dates: end: 2019

REACTIONS (6)
  - Depressed level of consciousness [Unknown]
  - Memory impairment [Unknown]
  - Hypokinesia [Unknown]
  - Incoherent [Unknown]
  - Unevaluable event [Unknown]
  - Oxygen saturation decreased [Unknown]
